FAERS Safety Report 6529309-2 (Version None)
Quarter: 2010Q1

REPORT INFORMATION
  Report Type: 
  Country: None (occurrence: None)
  Receive Date: 20100107
  Receipt Date: 20091230
  Transmission Date: 20100710
  Serious: Yes (Other)
  Sender: FDA-Public Use
  Company Number: PHEH2009US18606

PATIENT
  Sex: Female

DRUGS (2)
  1. CLOZARIL [Suspect]
     Dosage: 200 MG, UNK
  2. VICODIN [Concomitant]
     Dosage: UNK, UNK

REACTIONS (4)
  - FALL [None]
  - JOINT DISLOCATION [None]
  - LIMB OPERATION [None]
  - SPINAL FRACTURE [None]
